FAERS Safety Report 12145590 (Version 1)
Quarter: 2016Q1

REPORT INFORMATION
  Report Type: Spontaneous
  Country: US (occurrence: None)
  Receive Date: 20160303
  Receipt Date: 20160303
  Transmission Date: 20160526
  Serious: No
  Sender: FDA-Public Use
  Company Number: None

PATIENT
  Age: 29 Year
  Sex: Male
  Weight: 81 kg

DRUGS (2)
  1. BUPROPION. [Suspect]
     Active Substance: BUPROPION
     Route: 048
     Dates: start: 20090317, end: 20150926
  2. DESIPRAMINE [Suspect]
     Active Substance: DESIPRAMINE
     Route: 048
     Dates: start: 20120910, end: 20150926

REACTIONS (2)
  - Seizure [None]
  - Tongue injury [None]

NARRATIVE: CASE EVENT DATE: 20150930
